FAERS Safety Report 5105530-5 (Version None)
Quarter: 2006Q3

REPORT INFORMATION
  Report Type: 
  Country: None (occurrence: None)
  Receive Date: 20060915
  Receipt Date: 20060905
  Transmission Date: 20061208
  Serious: Yes (Death)
  Sender: FDA-Public Use
  Company Number: US-JNJFOC-20060902674

PATIENT
  Age: 31 Year
  Sex: Male

DRUGS (4)
  1. ACETAMINOPHEN [Suspect]
     Route: 048
  2. ACETAMINOPHEN [Suspect]
     Indication: DRUG ABUSER
     Route: 048
  3. MIRTAZAPINE [Suspect]
     Indication: DRUG ABUSER
  4. LORAZEPAM [Suspect]
     Indication: DRUG ABUSER

REACTIONS (2)
  - DROWNING [None]
  - INTENTIONAL DRUG MISUSE [None]
